FAERS Safety Report 8398796-X (Version None)
Quarter: 2012Q2

REPORT INFORMATION
  Report Type: 
  Country: None (occurrence: None)
  Receive Date: 20120524
  Receipt Date: 20120514
  Transmission Date: 20120825
  Serious: Yes (Death)
  Sender: FDA-Public Use
  Company Number: AUR-APL-2012-02290

PATIENT
  Age: 74 Year
  Sex: Male

DRUGS (1)
  1. METFFORMIN HYDROCHLORIDE [Suspect]
     Indication: DIABETES MELLITUS
     Dosage: (500 MG), ORAL
     Route: 048

REACTIONS (3)
  - RENAL FAILURE [None]
  - LACTIC ACIDOSIS [None]
  - BLOOD POTASSIUM INCREASED [None]
